FAERS Safety Report 8901727 (Version 1)
Quarter: 2012Q4

REPORT INFORMATION
  Report Type: Spontaneous
  Country: US (occurrence: None)
  Receive Date: 20121105
  Receipt Date: 20121105
  Transmission Date: 20130627
  Serious: Yes (Death)
  Sender: FDA-Public Use
  Company Number: DSA_60445_2012

PATIENT

DRUGS (5)
  1. FLUOROURACIL [Suspect]
     Indication: COLON CANCER
     Dosage: 400 mg/m2 every other week
     Route: 040
  2. FLUOROURACIL [Suspect]
     Indication: COLON CANCER
     Dosage: 2400 mg/m2 over 46 hours
  3. OXALIPLATIN [Suspect]
     Dosage: 85 mg/m2
  4. LEUCOVORIN [Suspect]
     Dosage: 400 mg/m2
  5. BEVACIZUMAB [Suspect]

REACTIONS (1)
  - Sepsis [None]
